FAERS Safety Report 5397563-9 (Version None)
Quarter: 2007Q3

REPORT INFORMATION
  Report Type: 
  Country: None (occurrence: None)
  Receive Date: 20070724
  Receipt Date: 20070724
  Transmission Date: 20080115
  Serious: Yes (Death, Life-Threatening, Hospitalization, Disabling, Other)
  Sender: FDA-Public Use
  Company Number: None

PATIENT
  Sex: Male
  Weight: 89.3586 kg

DRUGS (3)
  1. BACTRIM [Suspect]
     Indication: STAPHYLOCOCCAL INFECTION
     Dosage: 500MG 2X
     Dates: start: 20050729, end: 20050807
  2. DOXYCYCLINE [Suspect]
     Indication: DISEASE RECURRENCE
     Dosage: 100MG 1
     Dates: start: 20050815, end: 20050816
  3. DOXYCYCLINE [Suspect]
     Indication: INFECTION
     Dosage: 100MG 1
     Dates: start: 20050815, end: 20050816

REACTIONS (14)
  - ANGIOIMMUNOBLASTIC T-CELL LYMPHOMA [None]
  - ANOREXIA [None]
  - CHILLS [None]
  - HALLUCINATION [None]
  - LEUKOCYTOCLASTIC VASCULITIS [None]
  - LYMPHADENOPATHY [None]
  - NAUSEA [None]
  - NIGHT SWEATS [None]
  - PEAU D'ORANGE [None]
  - PYREXIA [None]
  - RASH GENERALISED [None]
  - RASH PRURITIC [None]
  - SPLENOMEGALY [None]
  - THROMBOCYTOPENIA [None]
